FAERS Safety Report 6171768-1 (Version None)
Quarter: 2009Q2

REPORT INFORMATION
  Report Type: 
  Country: None (occurrence: None)
  Receive Date: 20090424
  Receipt Date: 20081216
  Transmission Date: 20091009
  Serious: No
  Sender: FDA-Public Use
  Company Number: SPV1-2008-02773

PATIENT
  Age: 26 Year
  Sex: Male

DRUGS (4)
  1. VYVANSE [Suspect]
     Indication: ATTENTION DEFICIT/HYPERACTIVITY DISORDER
     Dosage: 1X/DAY:QD, ORAL
     Route: 048
     Dates: start: 20060101, end: 20080101
  2. ZYPREXA [Concomitant]
  3. LAMICTAL [Concomitant]
  4. CELEXA [Concomitant]

REACTIONS (1)
  - DRUG INEFFECTIVE [None]
